FAERS Safety Report 9237089 (Version 1)
Quarter: 2013Q2

REPORT INFORMATION
  Report Type: Report from Study
  Country: US (occurrence: US)
  Receive Date: 20130417
  Receipt Date: 20130417
  Transmission Date: 20140414
  Serious: No
  Sender: FDA-Public Use
  Company Number: US-009507513-1303USA003878

PATIENT
  Sex: Female

DRUGS (7)
  1. BOCEPREVIR [Suspect]
     Indication: CHRONIC HEPATITIS C
     Dosage: 3 IN 1 D
     Dates: start: 20110702
  2. BOCEPREVIR [Suspect]
     Dosage: 3 IN 1 D
     Dates: start: 20110727
  3. RIBAVIRIN [Suspect]
     Indication: HEPATITIS C
     Dosage: 1000 MG 1 IN 1 D
     Dates: start: 20110702
  4. RIBAVIRIN [Suspect]
     Dosage: 1000 MG 1 IN 1 D
     Dates: start: 20110730
  5. RIBAVIRIN [Suspect]
     Dosage: 600 MG 1 IN 1 D
  6. PEGINTERFERON ALFA-2A [Suspect]
     Indication: HEPATITIS C
     Dosage: 180 MICROGRAM, QW
     Route: 058
     Dates: start: 20110702
  7. PEGINTERFERON ALFA-2A [Suspect]
     Dosage: 180 MICROGRAM, QW
     Route: 058
     Dates: start: 20120730

REACTIONS (2)
  - Haemoglobin decreased [Unknown]
  - Decreased appetite [Unknown]
